FAERS Safety Report 9539173 (Version 1)
Quarter: 2013Q3

REPORT INFORMATION
  Report Type: Spontaneous
  Country: US (occurrence: None)
  Receive Date: 20130917
  Receipt Date: 20130917
  Transmission Date: 20140515
  Serious: Yes (Death)
  Sender: FDA-Public Use
  Company Number: UCM201308-000054

PATIENT
  Sex: 0

DRUGS (2)
  1. DIVALPROEX SODIUM [Suspect]
     Dosage: 5 MG/KG, THREE TIMES A DAY, ORAL
     Route: 048
  2. TEMSIROLIMUS [Suspect]
     Dosage: INITIAL: 60 MG/ME2/ WEEK

REACTIONS (1)
  - Mucosal inflammation [None]
